FAERS Safety Report 14826536 (Version 1)
Quarter: 2018Q2

REPORT INFORMATION
  Report Type: Spontaneous
  Country: US (occurrence: US)
  Receive Date: 20180404
  Receipt Date: 20180404
  Transmission Date: 20180711
  Serious: No
  Sender: FDA-Public Use
  Company Number: None

PATIENT

DRUGS (1)
  1. CHLORHEXIDINE 12% RINSE [Suspect]
     Active Substance: CHLORHEXIDINE

REACTIONS (1)
  - Drug effect incomplete [None]
